FAERS Safety Report 6041399-2 (Version None)
Quarter: 2009Q1

REPORT INFORMATION
  Report Type: 
  Country: None (occurrence: None)
  Receive Date: 20090116
  Receipt Date: 20081010
  Transmission Date: 20090719
  Serious: No
  Sender: FDA-Public Use
  Company Number: US-BRISTOL-MYERS SQUIBB COMPANY-14365670

PATIENT
  Age: 40 Year
  Sex: Female
  Weight: 54 kg

DRUGS (4)
  1. ABILIFY [Suspect]
     Indication: ANGER
     Dates: start: 20080101
  2. XANAX [Concomitant]
  3. TRAZODONE HCL [Concomitant]
  4. PROZAC [Concomitant]

REACTIONS (1)
  - TONGUE DISORDER [None]
